FAERS Safety Report 17374202 (Version 1)
Quarter: 2020Q1

REPORT INFORMATION
  Report Type: Spontaneous
  Country: US (occurrence: US)
  Receive Date: 20200205
  Receipt Date: 20200205
  Transmission Date: 20200409
  Serious: No
  Sender: FDA-Public Use
  Company Number: US-AMNEAL PHARMACEUTICALS-2019-AMRX-02745

PATIENT
  Age: 86 Year
  Sex: Female
  Weight: 80.74 kg

DRUGS (3)
  1. GUAIFENESIN. [Suspect]
     Active Substance: GUAIFENESIN
     Dosage: 1 CAPSULES, EVERY 12HR
     Route: 048
     Dates: start: 20191112, end: 20191112
  2. GUAIFENESIN. [Suspect]
     Active Substance: GUAIFENESIN
     Dosage: 1 CAPSULES, EVERY 12HR
     Route: 048
     Dates: start: 20191112, end: 20191112
  3. GUAIFENESIN. [Suspect]
     Active Substance: GUAIFENESIN
     Indication: PRODUCTIVE COUGH
     Dosage: 1 CAPSULES, EVERY 12HR
     Route: 048
     Dates: start: 20191112, end: 20191112

REACTIONS (5)
  - Choking [Recovered/Resolved]
  - Nausea [Recovered/Resolved]
  - Vomiting [Recovered/Resolved]
  - Product physical issue [Unknown]
  - Product use complaint [Unknown]

NARRATIVE: CASE EVENT DATE: 20191112
